FAERS Safety Report 17025401 (Version 1)
Quarter: 2019Q4

REPORT INFORMATION
  Report Type: Spontaneous
  Country: US (occurrence: US)
  Receive Date: 20191113
  Receipt Date: 20191113
  Transmission Date: 20200122
  Serious: Yes (Hospitalization, Congenital Anomaly)
  Sender: FDA-Public Use
  Company Number: US-PFIZER INC-2019484806

PATIENT
  Age: 12 Day
  Sex: Female
  Weight: .68 kg

DRUGS (2)
  1. PREDNISONE. [Suspect]
     Active Substance: PREDNISONE
     Indication: LUNG DISORDER
     Route: 064
  2. REVATIO [Suspect]
     Active Substance: SILDENAFIL CITRATE
     Indication: SENSATION OF BLOOD FLOW
     Dosage: 20 MG, 3X/DAY
     Route: 064

REACTIONS (4)
  - Premature baby [Not Recovered/Not Resolved]
  - Cleft palate [Not Recovered/Not Resolved]
  - Ear malformation [Not Recovered/Not Resolved]
  - Maternal exposure during pregnancy [Not Recovered/Not Resolved]

NARRATIVE: CASE EVENT DATE: 20191025
